FAERS Safety Report 11827224 (Version 1)
Quarter: 2015Q4

REPORT INFORMATION
  Report Type: Spontaneous
  Country: IN (occurrence: IN)
  Receive Date: 20151211
  Receipt Date: 20151211
  Transmission Date: 20160305
  Serious: Yes (Hospitalization)
  Sender: FDA-Public Use
  Company Number: IN-MYLANLABS-2015M1044338

PATIENT
  Age: 38 Year
  Sex: Female

DRUGS (2)
  1. PHENOBARBITAL. [Suspect]
     Active Substance: PHENOBARBITAL
     Indication: GENERALISED TONIC-CLONIC SEIZURE
     Dosage: SHE HAD SELF-MEDICATED WITH 30MG TABLETS TAKEN ERRATICALLY OVER 5 YEARS
     Route: 048
  2. PHENYTOIN. [Suspect]
     Active Substance: PHENYTOIN
     Indication: GENERALISED TONIC-CLONIC SEIZURE
     Dosage: SHE HAD SELF-MEDICATED WITH 100MG TABLETS TAKEN ERRATICALLY OVER 5 YEARS
     Route: 048

REACTIONS (3)
  - Psychogenic seizure [Recovered/Resolved]
  - Self-medication [Recovered/Resolved]
  - Toxicity to various agents [Recovered/Resolved]
